FAERS Safety Report 20032276 (Version 1)
Quarter: 2021Q4

REPORT INFORMATION
  Report Type: Spontaneous
  Country: US (occurrence: US)
  Receive Date: 20211103
  Receipt Date: 20211103
  Transmission Date: 20220303
  Serious: Yes (Other)
  Sender: FDA-Public Use
  Company Number: US-ALLERGAN-2118714US

PATIENT
  Sex: Female

DRUGS (4)
  1. VRAYLAR [Suspect]
     Active Substance: CARIPRAZINE
     Indication: Bipolar I disorder
     Dosage: UNK
  2. KLONOPIN [Suspect]
     Active Substance: CLONAZEPAM
     Indication: Product used for unknown indication
     Dosage: UNK
  3. ESCITALOPRAM [Suspect]
     Active Substance: ESCITALOPRAM OXALATE
     Indication: Product used for unknown indication
     Dosage: UNK
  4. LAMOTRIGINE [Suspect]
     Active Substance: LAMOTRIGINE
     Indication: Product used for unknown indication
     Dosage: UNK

REACTIONS (1)
  - Suicide attempt [Unknown]
